FAERS Safety Report 19302928 (Version 1)
Quarter: 2021Q2

REPORT INFORMATION
  Report Type: Report from Study
  Country: DE (occurrence: DE)
  Receive Date: 20210525
  Receipt Date: 20210525
  Transmission Date: 20210717
  Serious: Yes (Other)
  Sender: FDA-Public Use
  Company Number: DE-ACCORD-225890

PATIENT
  Age: 1 Year
  Sex: Male

DRUGS (3)
  1. CYCLOPHOSPHAMIDE/CYCLOPHOSPHAMIDE MONOHYDRATE [Suspect]
     Active Substance: CYCLOPHOSPHAMIDE
     Indication: PROPHYLAXIS AGAINST GRAFT VERSUS HOST DISEASE
  2. MYCOPHENOLIC ACID. [Suspect]
     Active Substance: MYCOPHENOLIC ACID
     Indication: PROPHYLAXIS AGAINST GRAFT VERSUS HOST DISEASE
  3. TACROLIMUS. [Suspect]
     Active Substance: TACROLIMUS
     Indication: PROPHYLAXIS AGAINST GRAFT VERSUS HOST DISEASE

REACTIONS (6)
  - Acute graft versus host disease in skin [Recovered/Resolved]
  - Gastroenteritis norovirus [Recovered/Resolved]
  - Sepsis [Recovered/Resolved]
  - Cytomegalovirus infection reactivation [Recovered/Resolved]
  - Pseudomonal skin infection [Recovered/Resolved]
  - Human herpesvirus 6 infection reactivation [Recovered/Resolved]
